FAERS Safety Report 8825083 (Version 2)
Quarter: 2015Q2

REPORT INFORMATION
  Report Type: Report from Study
  Country: US (occurrence: US)
  Receive Date: 20121004
  Receipt Date: 20150416
  Transmission Date: 20150821
  Serious: Yes (Death)
  Sender: FDA-Public Use
  Company Number: US-ROCHE-1131492

PATIENT
  Age: 56 Year
  Sex: Female

DRUGS (9)
  1. PROCRIT [Concomitant]
     Active Substance: ERYTHROPOIETIN
     Dosage: 40000 U
     Route: 065
  2. RITUXAN [Suspect]
     Active Substance: RITUXIMAB
     Indication: OFF LABEL USE
  3. DECADRON [Concomitant]
     Active Substance: DEXAMETHASONE
     Route: 042
  4. RITUXAN [Suspect]
     Active Substance: RITUXIMAB
     Indication: LYMPHOMA
     Dosage: ALSO RECEIVED ON 11/AUG/2004, 17/AUG/2004 AND 18/AUG/2004
     Route: 042
     Dates: start: 20040804
  5. RITUXAN [Suspect]
     Active Substance: RITUXIMAB
     Indication: LUNG NEOPLASM MALIGNANT
  6. ALTEPLASE [Concomitant]
     Active Substance: ALTEPLASE
     Route: 065
  7. TYLENOL [Concomitant]
     Active Substance: ACETAMINOPHEN
     Route: 048
  8. DECADRON [Concomitant]
     Active Substance: DEXAMETHASONE
     Route: 042
  9. BENADRYL [Concomitant]
     Active Substance: DIPHENHYDRAMINE HYDROCHLORIDE
     Route: 042

REACTIONS (2)
  - Death [Fatal]
  - Burning sensation [Unknown]

NARRATIVE: CASE EVENT DATE: 20040910
